FAERS Safety Report 7624704-2 (Version None)
Quarter: 2011Q3

REPORT INFORMATION
  Report Type: 
  Country: None (occurrence: None)
  Receive Date: 20110720
  Receipt Date: 20110707
  Transmission Date: 20111222
  Serious: Yes (Hospitalization)
  Sender: FDA-Public Use
  Company Number: US-AMGEN-USASP2011034539

PATIENT
  Sex: Female

DRUGS (4)
  1. CELEBREX [Concomitant]
  2. PREMPRO [Concomitant]
  3. ENBREL [Suspect]
     Indication: RHEUMATOID ARTHRITIS
     Dosage: 50 MG, QWK
     Dates: start: 20090101
  4. PREDNISONE [Concomitant]

REACTIONS (5)
  - HOT FLUSH [None]
  - HYPERHIDROSIS [None]
  - MYALGIA [None]
  - ELECTROENCEPHALOGRAM [None]
  - FATIGUE [None]
